FAERS Safety Report 6096130-1 (Version None)
Quarter: 2009Q1

REPORT INFORMATION
  Report Type: 
  Country: None (occurrence: None)
  Receive Date: 20090227
  Receipt Date: 20080917
  Transmission Date: 20090719
  Serious: No
  Sender: FDA-Public Use
  Company Number: A0746863A

PATIENT
  Age: 34 Year
  Sex: Female

DRUGS (5)
  1. LAMICTAL [Suspect]
     Indication: BIPOLAR DISORDER
     Route: 048
     Dates: start: 20080301, end: 20080801
  2. BUSPAR [Concomitant]
     Route: 048
  3. XANAX [Concomitant]
     Route: 048
  4. AMBIEN CR [Concomitant]
     Route: 048
  5. VYVANSE [Concomitant]
     Route: 048

REACTIONS (2)
  - RASH [None]
  - RASH PRURITIC [None]
